FAERS Safety Report 6384345-4 (Version None)
Quarter: 2009Q4

REPORT INFORMATION
  Report Type: 
  Country: None (occurrence: None)
  Receive Date: 20091001
  Receipt Date: 20090922
  Transmission Date: 20100525
  Serious: Yes (Hospitalization, Other)
  Sender: FDA-Public Use
  Company Number: US-JNJFOC-20090809354

PATIENT
  Sex: Male
  Weight: 64.41 kg

DRUGS (1)
  1. REMICADE [Suspect]
     Indication: CROHN'S DISEASE
     Dosage: THERAPY DATES UNSPECIFIED
     Route: 042
     Dates: start: 20060616, end: 20090101

REACTIONS (10)
  - ABSCESS [None]
  - ABSCESS INTESTINAL [None]
  - BASAL CELL CARCINOMA [None]
  - COLONIC FISTULA [None]
  - COLONIC STENOSIS [None]
  - CONDITION AGGRAVATED [None]
  - CROHN'S DISEASE [None]
  - FISTULA [None]
  - INTESTINAL OPERATION [None]
  - POST PROCEDURAL INFECTION [None]
